FAERS Safety Report 4829524-X (Version None)
Quarter: 2005Q4

REPORT INFORMATION
  Report Type: 
  Country: None (occurrence: None)
  Receive Date: 20051116
  Receipt Date: 20050401
  Transmission Date: 20060501
  Serious: Yes (Hospitalization)
  Sender: FDA-Public Use
  Company Number: 2005GB01132

PATIENT
  Age: 24756 Day
  Sex: Male

DRUGS (15)
  1. ROSUVASTATIN [Suspect]
     Indication: RENAL FAILURE CHRONIC
     Route: 048
     Dates: start: 20031121
  2. ALLOPURINOL [Concomitant]
     Indication: GOUT
     Dosage: STARTED MORE THAN 12 MONTHS PRIOR TO STUDY START
     Route: 048
  3. PIRITON [Concomitant]
     Indication: PRURITUS
     Dosage: STARTED MORE THAN 12 MONTHS PRIOR TO STUDY START
     Route: 048
  4. PHOSEX [Concomitant]
     Indication: BLOOD PHOSPHORUS INCREASED
     Dosage: STARTED MORE THAN 12 MONTHS PRIOR TO STUDY START
     Route: 048
  5. RENAGEL [Concomitant]
     Indication: BONE DISORDER
     Route: 048
     Dates: start: 20030728
  6. ACETAMINOPHEN [Concomitant]
     Indication: PAIN
     Route: 048
     Dates: start: 20040726
  7. SENNA [Concomitant]
     Indication: CONSTIPATION
     Route: 048
     Dates: start: 20040726
  8. GAVISCON [Concomitant]
     Indication: DYSPEPSIA
     Route: 048
     Dates: start: 20040803
  9. ONDANSETRON [Concomitant]
     Indication: NAUSEA
     Route: 042
     Dates: start: 20040803
  10. ONDANSETRON [Concomitant]
     Indication: VOMITING
     Route: 042
     Dates: start: 20040803
  11. WARFARIN [Concomitant]
     Indication: ATRIAL FIBRILLATION
     Route: 048
     Dates: start: 20040924
  12. ASPIRIN [Concomitant]
     Indication: FISTULA
     Route: 048
     Dates: start: 20041025
  13. EPREX [Concomitant]
     Indication: NEPHROGENIC ANAEMIA
     Dosage: STARTED MORE THAN 12 MONTHS PRIOR TO STUDY START
     Route: 042
  14. VENOFER [Concomitant]
     Indication: NEPHROGENIC ANAEMIA
     Dosage: STARTED MORE THAN 12 MONTHS PRIOR TO STUDY START
     Route: 042
  15. 1-ALPHACALCIDOL [Concomitant]
     Indication: BONE DISORDER
     Route: 042
     Dates: start: 20040909

REACTIONS (3)
  - GRAFT INFECTION [None]
  - INTERNATIONAL NORMALISED RATIO INCREASED [None]
  - STAPHYLOCOCCAL INFECTION [None]
